FAERS Safety Report 8258418-5 (Version None)
Quarter: 2012Q1

REPORT INFORMATION
  Report Type: 
  Country: None (occurrence: None)
  Receive Date: 20120322
  Receipt Date: 20111228
  Transmission Date: 20120608
  Serious: Yes (Death)
  Sender: FDA-Public Use
  Company Number: UTC-013970

PATIENT
  Age: 41 Year
  Sex: Female
  Weight: 70.9 kg

DRUGS (3)
  1. DIURETICS (DIURETICS) [Concomitant]
  2. TYVASO [Suspect]
     Indication: PULMONARY HYPERTENSION
     Dosage: 54 MCG (18 MCG, 3 IN 1 D),INHALATION
     Route: 055
     Dates: start: 20110921
  3. TACROLIMUS [Concomitant]

REACTIONS (1)
  - HEPATIC FAILURE [None]
